FAERS Safety Report 8905142 (Version 1)
Quarter: 2012Q4

REPORT INFORMATION
  Report Type: 
  Country: US (occurrence: US)
  Receive Date: 20121113
  Receipt Date: 20121113
  Transmission Date: 20130627
  Serious: No
  Sender: FDA-Public Use
  Company Number: US-009507513-1210USA010375

PATIENT
  Sex: Female

DRUGS (3)
  1. PEGINTRON [Suspect]
     Indication: HEPATITIS C
     Dosage: 0.5 ml, UNK
     Dates: start: 20121005
  2. PEGINTRON [Suspect]
     Dosage: 0.3 ml, UNK
  3. REBETOL [Suspect]
     Indication: HEPATITIS C
     Dosage: UNK
     Route: 048
     Dates: start: 20121005

REACTIONS (8)
  - Blister [Unknown]
  - Insomnia [Unknown]
  - White blood cell count decreased [Unknown]
  - Rash generalised [Unknown]
  - Depressed mood [Unknown]
  - Anxiety [Unknown]
  - Decreased appetite [Unknown]
  - Asthenia [Unknown]
